FAERS Safety Report 18564329 (Version 1)
Quarter: 2020Q4

REPORT INFORMATION
  Report Type: Spontaneous
  Country: US (occurrence: US)
  Receive Date: 20201130
  Receipt Date: 20201130
  Transmission Date: 20210114
  Serious: Yes (Other)
  Sender: FDA-Public Use
  Company Number: None

PATIENT
  Age: 51 Year
  Sex: Female
  Weight: 72 kg

DRUGS (8)
  1. CITALOPRAM [Concomitant]
     Active Substance: CITALOPRAM HYDROBROMIDE
  2. LISINIPRIL [Concomitant]
     Active Substance: LISINOPRIL
  3. CLONAZEPAM 1MG TABLETS MFG-MYLAN- GENERIC EQUIVALENT FOR KLONOPIN 1MG [Suspect]
     Active Substance: CLONAZEPAM
     Indication: ANXIETY
     Dosage: ?          QUANTITY:2 TABLET(S);?
     Route: 048
     Dates: start: 20201116, end: 20201120
  4. BUPRENORPHINE. [Concomitant]
     Active Substance: BUPRENORPHINE
  5. LEVOTHYROXINE. [Concomitant]
     Active Substance: LEVOTHYROXINE
  6. CLONAZEPAM 1MG TABLETS MFG-MYLAN- GENERIC EQUIVALENT FOR KLONOPIN 1MG [Suspect]
     Active Substance: CLONAZEPAM
     Indication: INSOMNIA
     Dosage: ?          QUANTITY:2 TABLET(S);?
     Route: 048
     Dates: start: 20201116, end: 20201120
  7. ALPRAZOLAM. [Concomitant]
     Active Substance: ALPRAZOLAM
  8. CLONAZEPAM 1MG TABLETS MFG-MYLAN- GENERIC EQUIVALENT FOR KLONOPIN 1MG [Suspect]
     Active Substance: CLONAZEPAM
     Indication: PANIC DISORDER
     Dosage: ?          QUANTITY:2 TABLET(S);?
     Route: 048
     Dates: start: 20201116, end: 20201120

REACTIONS (3)
  - Withdrawal syndrome [None]
  - Product substitution issue [None]
  - Product formulation issue [None]

NARRATIVE: CASE EVENT DATE: 20201123
